FAERS Safety Report 6435248-8 (Version None)
Quarter: 2009Q4

REPORT INFORMATION
  Report Type: 
  Country: None (occurrence: None)
  Receive Date: 20091110
  Receipt Date: 20091104
  Transmission Date: 20100525
  Serious: Yes (Hospitalization)
  Sender: FDA-Public Use
  Company Number: US-ELI_LILLY_AND_COMPANY-US200911001361

PATIENT
  Sex: Male

DRUGS (3)
  1. BYETTA [Suspect]
     Indication: TYPE 2 DIABETES MELLITUS
     Dates: end: 20090101
  2. LANTUS [Concomitant]
     Indication: TYPE 2 DIABETES MELLITUS
  3. PRANDIN /USA/ [Concomitant]
     Indication: TYPE 2 DIABETES MELLITUS

REACTIONS (3)
  - CHOLELITHIASIS [None]
  - OFF LABEL USE [None]
  - PANCREATITIS [None]
